FAERS Safety Report 6857794-5 (Version None)
Quarter: 2010Q3

REPORT INFORMATION
  Report Type: 
  Country: None (occurrence: None)
  Receive Date: 20100719
  Receipt Date: 20080123
  Transmission Date: 20110219
  Serious: No
  Sender: FDA-Public Use
  Company Number: US-PFIZER INC-2008010209

PATIENT
  Sex: Female

DRUGS (1)
  1. CHANTIX [Suspect]

REACTIONS (13)
  - ABNORMAL DREAMS [None]
  - APATHY [None]
  - DECREASED APPETITE [None]
  - DEPRESSION [None]
  - DIARRHOEA [None]
  - FATIGUE [None]
  - IRRITABILITY [None]
  - NAUSEA [None]
  - PALLOR [None]
  - PRURITUS [None]
  - STARING [None]
  - THIRST [None]
  - TREMOR [None]
